FAERS Safety Report 24236006 (Version 1)
Quarter: 2024Q3

REPORT INFORMATION
  Report Type: Spontaneous
  Country: US (occurrence: US)
  Receive Date: 20240822
  Receipt Date: 20240822
  Transmission Date: 20241017
  Serious: Yes (Hospitalization, Other)
  Sender: BIOGEN
  Company Number: US-BIOGEN-2024BI01274631

PATIENT
  Sex: Male

DRUGS (1)
  1. TYSABRI [Suspect]
     Active Substance: NATALIZUMAB
     Indication: Multiple sclerosis
     Route: 050
     Dates: start: 20211005, end: 20230518

REACTIONS (5)
  - Fall [Recovered/Resolved]
  - Cardiac failure congestive [Unknown]
  - Renal disorder [Unknown]
  - Motor dysfunction [Unknown]
  - Flushing [Unknown]

NARRATIVE: CASE EVENT DATE: 20240101
